FAERS Safety Report 20539401 (Version 3)
Quarter: 2022Q2

REPORT INFORMATION
  Report Type: Report from Study
  Country: AT (occurrence: AT)
  Receive Date: 20220302
  Receipt Date: 20220511
  Transmission Date: 20220721
  Serious: Yes (Hospitalization, Other)
  Sender: FDA-Public Use
  Company Number: AT-CELLTRION INC.-2022AT002144

PATIENT

DRUGS (36)
  1. TRASTUZUMAB [Suspect]
     Active Substance: TRASTUZUMAB
     Indication: HER2 positive breast cancer
     Dosage: 6 MG/KG, EVERY 3 WEEKS
     Route: 041
     Dates: start: 20181015, end: 20200910
  2. TRASTUZUMAB [Suspect]
     Active Substance: TRASTUZUMAB
     Dosage: 8 MG/KG, EVERY 3 WEEKS (MOST RECENT DOSE PRIOR TO THE EVENT:03/NOV/2021)
     Route: 041
     Dates: start: 20210512, end: 20211103
  3. TRASTUZUMAB [Suspect]
     Active Substance: TRASTUZUMAB
     Dosage: 8 MG/KG, EVERY 3 WEEKS
     Route: 041
     Dates: start: 20180924
  4. PERTUZUMAB [Suspect]
     Active Substance: PERTUZUMAB
     Indication: HER2 positive breast cancer
     Dosage: 840 MG EVERY 3 WEEKS
     Route: 042
     Dates: start: 20180924
  5. PERTUZUMAB [Suspect]
     Active Substance: PERTUZUMAB
     Dosage: 420 MG, EVERY 3 WEEKS (MOST RECENT DOSE PRIOR TO THE EVENT: 10/SEP/2020)
     Route: 042
     Dates: start: 20181015
  6. DENOSUMAB [Suspect]
     Active Substance: DENOSUMAB
     Indication: HER2 positive breast cancer
     Dosage: 120 MG EVERY 4 WEEKS (MOST RECENT DOSE PRIOR TO THE EVENT: 18/SEP/2018)
     Route: 058
     Dates: start: 20180918
  7. CAPECITABINE [Suspect]
     Active Substance: CAPECITABINE
     Indication: HER2 positive breast cancer
     Dosage: 500 MG (MOST RECENT DOSE PRIOR TO THE EVENT: 24/NOV/2021)
     Route: 048
     Dates: start: 20210515
  8. CAPECITABINE [Suspect]
     Active Substance: CAPECITABINE
     Dosage: 500 MG
     Route: 048
     Dates: start: 20210512, end: 20210513
  9. ADO-TRASTUZUMAB EMTANSINE [Suspect]
     Active Substance: ADO-TRASTUZUMAB EMTANSINE
     Indication: HER2 positive breast cancer
     Dosage: 3.6 MG/KG EVERY 3 WEEKS (LAST DRUG ADMINISTRATION PRIOR TO AE- 21/APR/2021)
     Route: 042
     Dates: start: 20201001
  10. DOCETAXEL [Suspect]
     Active Substance: DOCETAXEL
     Indication: HER2 positive breast cancer
     Dosage: 75 MG/M2 EVERY 3 WEEKS (MOST RECENT DOSE ON 23/JAN/2019)
     Route: 042
     Dates: start: 20180924
  11. TUCATINIB [Suspect]
     Active Substance: TUCATINIB
     Indication: HER2 positive breast cancer
     Dosage: 150 MG, 0.25 DAY
     Route: 048
     Dates: start: 20210512, end: 20210513
  12. TUCATINIB [Suspect]
     Active Substance: TUCATINIB
     Dosage: 150 MG, 0.25 DAY
     Route: 048
     Dates: start: 20210515, end: 20211124
  13. ZOFRAN [Concomitant]
     Active Substance: ONDANSETRON HYDROCHLORIDE
     Dosage: EVERY 3 WEEKS BEFORE EACH CHEMOTHERAPY 21/APR/2021
     Route: 042
     Dates: start: 20211213
  14. ZOFRAN [Concomitant]
     Active Substance: ONDANSETRON HYDROCHLORIDE
     Dosage: EVERY 3 WEEKS FOR 2 DAYS
     Route: 048
     Dates: start: 20220124
  15. ZOFRAN [Concomitant]
     Active Substance: ONDANSETRON HYDROCHLORIDE
     Dosage: 1.00 AMPULE EVERY 1 MONTH
     Route: 042
     Dates: start: 20180924, end: 20210421
  16. ZOFRAN [Concomitant]
     Active Substance: ONDANSETRON HYDROCHLORIDE
     Dosage: PRN (AS NEEDED)
     Route: 048
     Dates: start: 20181016, end: 20190308
  17. ALPRAZOLAM [Concomitant]
     Active Substance: ALPRAZOLAM
     Dosage: 0.5 MG PRN (AS NEEDED)
     Route: 048
     Dates: start: 20181114
  18. PRAM [CITALOPRAM HYDROBROMIDE] [Concomitant]
     Dosage: 40 MG, EVERY 1 DAY
     Route: 048
  19. XGEVA [Concomitant]
     Active Substance: DENOSUMAB
     Dosage: 120 MG, EVERY 1 MONTH
     Route: 013
     Dates: start: 20180918
  20. TAMOXIFEN [Concomitant]
     Active Substance: TAMOXIFEN
     Dosage: 200 MG, EVERY 1 DAY
     Route: 048
     Dates: start: 20200325, end: 20200930
  21. CALCIDURAN [ASCORBIC ACID;CALCIUM PHOSPHATE;CITRIC ACID;COLECALCIFEROL [Concomitant]
     Dosage: 500 MG, EVERY 0.5 DAYS
     Route: 048
     Dates: start: 20190827
  22. MODERNA COVID-19 VACCINE [Concomitant]
     Active Substance: ELASOMERAN
     Dosage: 0.5 ML
     Route: 030
     Dates: start: 20210315
  23. MODERNA COVID-19 VACCINE [Concomitant]
     Active Substance: ELASOMERAN
     Dosage: 0.5 ML
     Route: 030
     Dates: start: 20210412
  24. DEXAMETHASONE [Concomitant]
     Active Substance: DEXAMETHASONE
     Dosage: 8 MG, EVERY 1 MONTH (OTHER EVERY 3 WEEKS BEFORE EACH CHEMOTHERAPY)
     Route: 042
     Dates: start: 20211213
  25. DEXAMETHASONE [Concomitant]
     Active Substance: DEXAMETHASONE
     Dosage: 8 MG (OTHER EVERY 3 WEEKS FOR TWO DAYS)
     Route: 048
     Dates: start: 20220124
  26. DEXAMETHASONE [Concomitant]
     Active Substance: DEXAMETHASONE
     Dosage: 8 MG, EVERY 1 MONTH
     Route: 048
     Dates: start: 20181016, end: 20181017
  27. KEPPRA [Concomitant]
     Active Substance: LEVETIRACETAM
     Indication: Epilepsy
     Dosage: 1000 MG, EVERY 0.5 DAYS
     Route: 048
     Dates: start: 20210513
  28. NOVALGIN (METAMIZOLE SODIUM) [Concomitant]
     Active Substance: METAMIZOLE SODIUM
     Dosage: 20 GTT DROPS, PRN (AS NEEDED)
     Route: 048
     Dates: start: 2018, end: 20210309
  29. TRAMADOL [Concomitant]
     Active Substance: TRAMADOL
     Dosage: 100 MG, 0.5 DAY
     Route: 048
     Dates: start: 2018, end: 20190514
  30. LORAZEPAM [Concomitant]
     Active Substance: LORAZEPAM
     Indication: Epilepsy
     Dosage: 2 MG
     Route: 042
     Dates: start: 20210513
  31. EMEND [Concomitant]
     Active Substance: APREPITANT
     Dosage: 80 MG (OTHER 4 DAYS CONSECUTIVELY EVERY 4 WEEKS)
     Route: 048
     Dates: start: 20181114, end: 20190125
  32. LOVENOX [Concomitant]
     Active Substance: ENOXAPARIN SODIUM
     Dosage: 20 MG, EVERY 1 DAY
     Route: 058
     Dates: start: 20211124
  33. TRAMADOL [Concomitant]
     Active Substance: TRAMADOL
     Dosage: 50 MG, PRN (AS NEEDED
     Route: 048
     Dates: start: 2018, end: 20190308
  34. DRONABINOL [Concomitant]
     Active Substance: DRONABINOL
     Dosage: 2.5 %, EVERY 0.5 DAY
     Route: 048
     Dates: start: 20210304
  35. DRONABINOL [Concomitant]
     Active Substance: DRONABINOL
     Dosage: 2 GTT DROPS, EVERY 0.33 DAY
     Route: 048
     Dates: start: 20190123
  36. ERYTHROPOIETIN [Concomitant]
     Active Substance: ERYTHROPOIETIN
     Dosage: 30000 IU, EVERY 1 WEEK
     Route: 058
     Dates: start: 20181016, end: 20190308

REACTIONS (4)
  - Syncope [Recovered/Resolved]
  - Hypokalaemia [Recovered/Resolved]
  - Soft tissue infection [Recovered/Resolved]
  - Diarrhoea [Recovered/Resolved]

NARRATIVE: CASE EVENT DATE: 20211123
